FAERS Safety Report 9656752 (Version 2)
Quarter: 2015Q4

REPORT INFORMATION
  Report Type: Report from Study
  Country: US (occurrence: US)
  Receive Date: 20131030
  Receipt Date: 20151006
  Transmission Date: 20160305
  Serious: Yes (Other)
  Sender: FDA-Public Use
  Company Number: US-ROCHE-1293410

PATIENT
  Age: 70 Year
  Sex: Male
  Weight: 83.54 kg

DRUGS (44)
  1. XELODA [Suspect]
     Active Substance: CAPECITABINE
     Dosage: 7 DAYS ON, 7 DAYS OFF
     Route: 048
  2. ONDANSETRON [Concomitant]
     Active Substance: ONDANSETRON
     Dosage: 8 MG BID X3, THEN AS NEEDED
     Route: 048
     Dates: start: 20110531
  3. LASIX [Concomitant]
     Active Substance: FUROSEMIDE
     Route: 048
     Dates: end: 20110531
  4. ZOFRAN [Concomitant]
     Active Substance: ONDANSETRON HYDROCHLORIDE
  5. XELODA [Suspect]
     Active Substance: CAPECITABINE
     Dosage: 7 DAYS ON, 14 DAYS OFF
     Route: 048
  6. AMBIEN [Concomitant]
     Active Substance: ZOLPIDEM TARTRATE
     Dosage: AS NEEDED, BEDTIME
     Route: 048
     Dates: start: 20090520
  7. PROCRIT [Concomitant]
     Active Substance: ERYTHROPOIETIN
     Route: 058
  8. XELODA [Suspect]
     Active Substance: CAPECITABINE
     Indication: DIATHERMY
     Dosage: 7 DAYS ON, 7 DAYS OFF
     Route: 048
     Dates: start: 20090424
  9. XELODA [Suspect]
     Active Substance: CAPECITABINE
     Indication: PARATHYROID TUMOUR MALIGNANT
     Dosage: DAILY X7, THEN 14 DAYS OFF DRUG
     Route: 048
     Dates: start: 20110531
  10. DEXAMETHASONE. [Concomitant]
     Active Substance: DEXAMETHASONE
     Dosage: TIMES 3 DAYS WITH CHEMO
     Route: 048
     Dates: start: 20100607
  11. METHOCARBAMOL. [Concomitant]
     Active Substance: METHOCARBAMOL
     Dosage: EVERY 6 HOURS AS NEEDED
     Route: 048
     Dates: start: 20100628
  12. REMERON [Concomitant]
     Active Substance: MIRTAZAPINE
     Dosage: BEDTIME
     Route: 048
     Dates: start: 20090520
  13. FERROUS SULFATE [Concomitant]
     Active Substance: FERROUS SULFATE\FERROUS SULFATE, DRIED
     Route: 048
  14. ANUSOL-HC (UNITED STATES) [Concomitant]
     Route: 054
  15. ATIVAN [Concomitant]
     Active Substance: LORAZEPAM
     Route: 048
     Dates: start: 20091207
  16. CARISOPRODOL. [Concomitant]
     Active Substance: CARISOPRODOL
     Route: 048
  17. CAMPTOSAR [Concomitant]
     Active Substance: IRINOTECAN HYDROCHLORIDE
     Route: 042
     Dates: start: 20090424
  18. MEGACE [Concomitant]
     Active Substance: MEGESTROL ACETATE
     Route: 048
     Dates: start: 20091228
  19. PROCHLORPERAZINE MALEATE. [Concomitant]
     Active Substance: PROCHLORPERAZINE MALEATE
     Dosage: EVERY 4 HOURS AS NEEDED
     Route: 048
     Dates: start: 20090423
  20. IRINOTECAN [Concomitant]
     Active Substance: IRINOTECAN
  21. MIRTAZAPINE. [Concomitant]
     Active Substance: MIRTAZAPINE
     Route: 048
  22. CAMPTOSAR [Concomitant]
     Active Substance: IRINOTECAN HYDROCHLORIDE
     Route: 065
     Dates: start: 20110531
  23. LASIX [Concomitant]
     Active Substance: FUROSEMIDE
     Route: 048
  24. HEPLOCK [Concomitant]
     Dosage: 5 CC
     Route: 065
  25. ZOLPIDEM TARTRATE. [Concomitant]
     Active Substance: ZOLPIDEM TARTRATE
     Route: 048
  26. ALOXI [Concomitant]
     Active Substance: PALONOSETRON HYDROCHLORIDE
     Dosage: EVERY 4 WEEKS WITH CHEMO
     Route: 042
     Dates: start: 20110531
  27. SODIUM CHLORIDE. [Concomitant]
     Active Substance: SODIUM CHLORIDE
  28. ARANESP [Concomitant]
     Active Substance: DARBEPOETIN ALFA
     Route: 058
  29. SPIRONOLACTONE. [Concomitant]
     Active Substance: SPIRONOLACTONE
     Route: 048
  30. FERRLECIT (UNITED STATES) [Concomitant]
     Route: 042
  31. AVASTIN [Suspect]
     Active Substance: BEVACIZUMAB
     Indication: DIATHERMY
     Route: 042
     Dates: start: 20090424
  32. AVASTIN [Suspect]
     Active Substance: BEVACIZUMAB
     Indication: PARATHYROID TUMOUR MALIGNANT
     Dosage: MIXED IN 150 CC NS
     Route: 041
     Dates: start: 20110531
  33. XELODA [Suspect]
     Active Substance: CAPECITABINE
     Dosage: 7 DAYS ON, 14 DAYS OFF
     Route: 048
  34. LOVENOX [Concomitant]
     Active Substance: ENOXAPARIN SODIUM
     Dosage: (80MG/0.8ML)
     Route: 058
     Dates: start: 20091001
  35. LOVENOX [Concomitant]
     Active Substance: ENOXAPARIN SODIUM
     Route: 058
     Dates: start: 20101011
  36. DEXAMETHASONE. [Concomitant]
     Active Substance: DEXAMETHASONE
     Dosage: MIXED IN 50 CC NS, EVERY 4 WEEKS WITH CHEMO
     Route: 042
     Dates: start: 20110531
  37. BENADRYL [Concomitant]
     Active Substance: DIPHENHYDRAMINE HYDROCHLORIDE
     Dosage: EVERY 4 WEEKS WITH CHEMO
     Route: 040
     Dates: start: 20110531
  38. FAMOTIDINE. [Concomitant]
     Active Substance: FAMOTIDINE
     Route: 048
  39. NORCO [Concomitant]
     Active Substance: ACETAMINOPHEN\HYDROCODONE BITARTRATE
     Dosage: 7.5-325 MG
     Route: 048
  40. ENOXAPARIN [Concomitant]
     Active Substance: ENOXAPARIN
     Dosage: 80 MG/0.8 ML, 1 SOLUTION DAILY
     Route: 065
  41. ASPIRIN. [Concomitant]
     Active Substance: ASPIRIN
  42. CAMPTOSAR [Concomitant]
     Active Substance: IRINOTECAN HYDROCHLORIDE
     Route: 042
     Dates: start: 20090424
  43. COUMADIN [Concomitant]
     Active Substance: WARFARIN SODIUM
     Route: 065
     Dates: start: 2010
  44. SPIRONOLACTONE. [Concomitant]
     Active Substance: SPIRONOLACTONE
     Route: 048
     Dates: start: 20090424

REACTIONS (30)
  - Ascites [Unknown]
  - Joint stiffness [Unknown]
  - Blood blister [Unknown]
  - Hip fracture [Unknown]
  - Fatigue [Unknown]
  - Temperature intolerance [Unknown]
  - Abdominal distension [Unknown]
  - Hernia [Unknown]
  - Depression [Unknown]
  - Dyspepsia [Unknown]
  - Diarrhoea [Unknown]
  - Peripheral swelling [Unknown]
  - Pleural effusion [Unknown]
  - Nocturia [Unknown]
  - Contusion [Unknown]
  - Full blood count abnormal [Unknown]
  - Aortic calcification [Unknown]
  - Terminal insomnia [Unknown]
  - Costochondritis [Unknown]
  - Atelectasis [Unknown]
  - Back pain [Unknown]
  - Weight decreased [Unknown]
  - Nausea [Unknown]
  - Fall [Unknown]
  - Iron deficiency anaemia [Unknown]
  - Deep vein thrombosis [Unknown]
  - Constipation [Unknown]
  - Asthenia [Unknown]
  - Back injury [Unknown]
  - Rhinitis [Unknown]

NARRATIVE: CASE EVENT DATE: 20090724
